FAERS Safety Report 5161653-6 (Version None)
Quarter: 2006Q4

REPORT INFORMATION
  Report Type: 
  Country: None (occurrence: None)
  Receive Date: 20061130
  Receipt Date: 20060215
  Transmission Date: 20070319
  Serious: No
  Sender: FDA-Public Use
  Company Number: US-BRISTOL-MYERS SQUIBB COMPANY-13285333

PATIENT
  Age: 59 Year
  Sex: Female

DRUGS (10)
  1. GLUCOPHAGE XR [Suspect]
     Indication: DIABETES MELLITUS MANAGEMENT
     Route: 048
  2. METFORMIN HCL [Suspect]
  3. DIOVAN HCT [Concomitant]
  4. LANTUS [Concomitant]
  5. LIPITOR [Concomitant]
  6. GLUCOSAMINE [Concomitant]
  7. IBUPROFEN [Concomitant]
  8. ASPIRIN [Concomitant]
  9. NOVOLOG [Concomitant]
     Dates: start: 20051102
  10. TYLENOL PM [Concomitant]

REACTIONS (1)
  - DYSGEUSIA [None]
